FAERS Safety Report 10632623 (Version 1)
Quarter: 2014Q4

REPORT INFORMATION
  Report Type: Spontaneous
  Country: DE (occurrence: None)
  Receive Date: 20141203
  Receipt Date: 20141203
  Transmission Date: 20150529
  Serious: Yes (Hospitalization, Other)
  Sender: FDA-Public Use
  Company Number: DE-2014VAL000615

PATIENT
  Age: 2 Day
  Sex: Male
  Weight: 3 kg

DRUGS (3)
  1. ALDACTONE /00006201/ (SPIRONOLACTONE) [Concomitant]
  2. CAPTOPRIL (CAPTOPRIL) [Concomitant]
  3. METOPROLOL TARTRATE. [Suspect]
     Active Substance: METOPROLOL TARTRATE
     Indication: MATERNAL EXPOSURE DURING PREGNANCY
     Route: 064
     Dates: start: 20131103, end: 20140725

REACTIONS (5)
  - Thrombocytopenia neonatal [None]
  - Exposure during breast feeding [None]
  - Foetal exposure during pregnancy [None]
  - Maternal drugs affecting foetus [None]
  - Bradycardia neonatal [None]
